FAERS Safety Report 10645762 (Version 4)
Quarter: 2015Q4

REPORT INFORMATION
  Report Type: Report from Study
  Country: US (occurrence: US)
  Receive Date: 20141211
  Receipt Date: 20151224
  Transmission Date: 20160304
  Serious: Yes (Hospitalization)
  Sender: FDA-Public Use
  Company Number: US-SA-2014SA170005

PATIENT
  Age: 47 Year
  Sex: Female

DRUGS (1)
  1. CEREZYME [Suspect]
     Active Substance: IMIGLUCERASE
     Indication: GAUCHER^S DISEASE
     Route: 042

REACTIONS (8)
  - Localised infection [Unknown]
  - Staphylococcal infection [Unknown]
  - Cerebral haemorrhage [Recovering/Resolving]
  - Fall [Unknown]
  - Sepsis [Unknown]
  - Asthenia [Unknown]
  - Blood pressure abnormal [Unknown]
  - Concussion [Unknown]

NARRATIVE: CASE EVENT DATE: 201412
